FAERS Safety Report 6388010-9 (Version None)
Quarter: 2009Q4

REPORT INFORMATION
  Report Type: 
  Country: None (occurrence: None)
  Receive Date: 20091001
  Receipt Date: 20091001
  Transmission Date: 20100525
  Serious: No
  Sender: FDA-Public Use
  Company Number: None

PATIENT
  Sex: Female
  Weight: 71.6683 kg

DRUGS (1)
  1. MIRAPEX [Suspect]
     Indication: MOVEMENT DISORDER
     Dosage: 1 TABLET 3X A DAY
     Dates: start: 20090113

REACTIONS (5)
  - COLD SWEAT [None]
  - FEELING COLD [None]
  - MALAISE [None]
  - NAUSEA [None]
  - PALLOR [None]
